FAERS Safety Report 7550039-2 (Version None)
Quarter: 2011Q2

REPORT INFORMATION
  Report Type: 
  Country: None (occurrence: None)
  Receive Date: 20110615
  Receipt Date: 20110611
  Transmission Date: 20111010
  Serious: Yes (Other)
  Sender: FDA-Public Use
  Company Number: US-PFIZER INC-2011118235

PATIENT
  Sex: Female

DRUGS (2)
  1. PRISTIQ [Suspect]
     Dosage: UNK
  2. EFFEXOR [Suspect]
     Dosage: UNK
     Dates: start: 20060101

REACTIONS (5)
  - PARAESTHESIA [None]
  - SUICIDAL IDEATION [None]
  - DRUG DEPENDENCE [None]
  - TEMPOROMANDIBULAR JOINT SYNDROME [None]
  - PAIN [None]
